FAERS Safety Report 6044666-1 (Version None)
Quarter: 2009Q1

REPORT INFORMATION
  Report Type: 
  Country: None (occurrence: None)
  Receive Date: 20090120
  Receipt Date: 20090109
  Transmission Date: 20090719
  Serious: Yes (Hospitalization)
  Sender: FDA-Public Use
  Company Number: GB-ABBOTT-08P-167-0433250-00

PATIENT
  Age: 78 Year
  Sex: Female
  Weight: 44.9 kg

DRUGS (5)
  1. FERROUS SULFATE TAB [Suspect]
     Indication: IRON DEFICIENCY
     Dates: start: 20040301, end: 20060310
  2. SINEMET [Interacting]
     Indication: DRUG USE FOR UNKNOWN INDICATION
  3. SINEMET [Interacting]
  4. ASPIRIN [Concomitant]
     Indication: DRUG USE FOR UNKNOWN INDICATION
  5. CITALOPRAM HYDROBROMIDE [Concomitant]
     Indication: DRUG USE FOR UNKNOWN INDICATION

REACTIONS (8)
  - BLOOD IRON DECREASED [None]
  - DEHYDRATION [None]
  - DRUG INTERACTION [None]
  - GENERAL PHYSICAL HEALTH DETERIORATION [None]
  - HYPOPHAGIA [None]
  - MOUTH ULCERATION [None]
  - ORAL DISORDER [None]
  - PARKINSONISM [None]
